FAERS Safety Report 13649662 (Version 1)
Quarter: 2017Q2

REPORT INFORMATION
  Report Type: Spontaneous
  Country: SI (occurrence: SI)
  Receive Date: 20170614
  Receipt Date: 20170614
  Transmission Date: 20170830
  Serious: Yes (Life-Threatening)
  Sender: FDA-Public Use
  Company Number: SI-B.I. PHARMACEUTICALS,INC./RIDGEFIELD-2017-BI-033067

PATIENT
  Age: 81 Year
  Sex: Female

DRUGS (7)
  1. DIAPREL MR [Concomitant]
     Active Substance: GLICLAZIDE
     Indication: DIABETES MELLITUS
     Dosage: DOSE: 60
     Route: 065
  2. PRADAXA [Suspect]
     Active Substance: DABIGATRAN ETEXILATE MESYLATE
     Indication: ATRIAL FIBRILLATION
     Route: 048
     Dates: start: 20170202, end: 20170411
  3. PRENESSA [Concomitant]
     Active Substance: PERINDOPRIL
     Indication: HYPERTENSION
     Dosage: DOSE: 4
     Route: 065
  4. TULIP [Concomitant]
     Active Substance: ATORVASTATIN
     Indication: CORONARY ARTERY DISEASE
     Dosage: DOSE: 20
     Route: 065
  5. TULIP [Concomitant]
     Active Substance: ATORVASTATIN
     Indication: ANGINA PECTORIS
  6. SIOFOR [Concomitant]
     Active Substance: METFORMIN HYDROCHLORIDE
     Indication: ANGINA PECTORIS
     Dosage: DOSE: 1000
     Route: 065
  7. CORIOL [Concomitant]
     Indication: HYPERTENSION
     Dosage: DOSE: 12.5
     Route: 065

REACTIONS (1)
  - Peripheral venous disease [Not Recovered/Not Resolved]
